FAERS Safety Report 6516233-4 (Version None)
Quarter: 2009Q4

REPORT INFORMATION
  Report Type: 
  Country: None (occurrence: None)
  Receive Date: 20091223
  Receipt Date: 20091218
  Transmission Date: 20100525
  Serious: Yes (Hospitalization, Other)
  Sender: FDA-Public Use
  Company Number: GB-NAPPMUNDI-GBR-2009-0005968

PATIENT
  Sex: Female

DRUGS (4)
  1. BUTRANS 20MG TRANSDERMAL PATCH [Suspect]
     Indication: FIBROMYALGIA
     Dosage: 20 MCG, Q1H
     Route: 062
  2. BUTRANS 20MG TRANSDERMAL PATCH [Suspect]
     Dosage: 5 UNK, UNK
     Route: 062
  3. MORPHINE SULFATE [Suspect]
     Indication: DRUG USE FOR UNKNOWN INDICATION
     Dosage: 10 MG, PRN
     Route: 048
  4. INFUMORPH [Suspect]
     Indication: DRUG USE FOR UNKNOWN INDICATION
     Dosage: UNK MCG, Q1H

REACTIONS (7)
  - CLAVICLE FRACTURE [None]
  - CONFUSIONAL STATE [None]
  - FALL [None]
  - INCORRECT DOSE ADMINISTERED [None]
  - LIMB DISCOMFORT [None]
  - MALAISE [None]
  - OVERDOSE [None]
